FAERS Safety Report 23539896 (Version 1)
Quarter: 2024Q1

REPORT INFORMATION
  Report Type: Spontaneous
  Country: US (occurrence: US)
  Receive Date: 20240219
  Receipt Date: 20240219
  Transmission Date: 20240409
  Serious: No
  Sender: FDA-Public Use
  Company Number: US-TEVA-VS-3142122

PATIENT
  Age: 66 Year
  Sex: Female
  Weight: 58.9 kg

DRUGS (2)
  1. AJOVY [Suspect]
     Active Substance: FREMANEZUMAB-VFRM
     Indication: Migraine
     Dosage: 225/1.5 MG/ML
     Route: 065
     Dates: end: 202306
  2. SUMATRIPTAN [Concomitant]
     Active Substance: SUMATRIPTAN

REACTIONS (8)
  - Occipital neuralgia [Recovered/Resolved]
  - Orthostatic hypertension [Recovered/Resolved]
  - Head discomfort [Recovered/Resolved]
  - Headache [Unknown]
  - Injection site swelling [Unknown]
  - Injection site irritation [Unknown]
  - Injection site pruritus [Unknown]
  - Primary stabbing headache [Recovered/Resolved]
